FAERS Safety Report 17321276 (Version 1)
Quarter: 2020Q1

REPORT INFORMATION
  Report Type: Other
  Country: US (occurrence: US)
  Receive Date: 20200126
  Receipt Date: 20200126
  Transmission Date: 20200409
  Serious: No
  Sender: FDA-Public Use
  Company Number: US-ACORDA-ACO_158403_2019

PATIENT
  Age: 45 Year
  Sex: Male

DRUGS (2)
  1. AMPYRA [Suspect]
     Active Substance: DALFAMPRIDINE
     Indication: MUSCULAR WEAKNESS
     Dosage: 10 MILLIGRAM, BID
     Route: 065
     Dates: start: 20190624
  2. AMPYRA [Suspect]
     Active Substance: DALFAMPRIDINE
     Indication: DYSGRAPHIA
     Dosage: UNK
     Route: 065
     Dates: start: 201807, end: 201807

REACTIONS (5)
  - Dizziness [Unknown]
  - Headache [Unknown]
  - Gait disturbance [Unknown]
  - Dizziness [Unknown]
  - Off label use [Unknown]

NARRATIVE: CASE EVENT DATE: 20180730
